FAERS Safety Report 5484098-8 (Version None)
Quarter: 2007Q4

REPORT INFORMATION
  Report Type: 
  Country: None (occurrence: None)
  Receive Date: 20071012
  Receipt Date: 20071010
  Transmission Date: 20080405
  Serious: Yes (Other)
  Sender: FDA-Public Use
  Company Number: US-SHR-US-2006-016324

PATIENT
  Age: 50 Year
  Sex: Female

DRUGS (1)
  1. BETASERON [Suspect]
     Dosage: 8 MIU, EVERY 2D
     Route: 058
     Dates: start: 20030723

REACTIONS (5)
  - BACK INJURY [None]
  - BIPOLAR DISORDER [None]
  - FALL [None]
  - MULTIPLE SCLEROSIS [None]
  - SELF-INJURIOUS IDEATION [None]
